FAERS Safety Report 8916134 (Version 2)
Quarter: 2013Q1

REPORT INFORMATION
  Report Type: Report from Study
  Country: CA (occurrence: CA)
  Receive Date: 20121120
  Receipt Date: 20130121
  Transmission Date: 20140127
  Serious: Yes (Death)
  Sender: FDA-Public Use
  Company Number: PHHY2012CA105421

PATIENT
  Age: 62 Year
  Sex: Male

DRUGS (1)
  1. CLOZARIL [Suspect]
     Dosage: UNK
     Dates: start: 20120409

REACTIONS (1)
  - Asphyxia [Fatal]
